FAERS Safety Report 7201355-5 (Version None)
Quarter: 2010Q4

REPORT INFORMATION
  Report Type: 
  Country: None (occurrence: None)
  Receive Date: 20101215
  Receipt Date: 20101208
  Transmission Date: 20110411
  Serious: No
  Sender: FDA-Public Use
  Company Number: JP-GDP-10409331

PATIENT
  Sex: Male

DRUGS (3)
  1. DIFFERIN [Suspect]
     Indication: ACNE
     Dosage: (TOPICAL)
     Route: 061
     Dates: start: 20101101, end: 20101104
  2. ALLELOCK [Concomitant]
  3. DALACIN C /00166001/ [Concomitant]

REACTIONS (3)
  - ERYTHEMA [None]
  - OROPHARYNGEAL PAIN [None]
  - PYREXIA [None]
